FAERS Safety Report 5479637-7 (Version None)
Quarter: 2007Q4

REPORT INFORMATION
  Report Type: 
  Country: None (occurrence: None)
  Receive Date: 20071008
  Receipt Date: 20071002
  Transmission Date: 20080405
  Serious: Yes (Death, Disabling)
  Sender: FDA-Public Use
  Company Number: A0685653A

PATIENT
  Age: 50 Year
  Sex: Male

DRUGS (15)
  1. AVANDIA [Suspect]
     Indication: TYPE 2 DIABETES MELLITUS
     Dosage: 4MG PER DAY
     Route: 048
     Dates: start: 20060728, end: 20070107
  2. AMOXICILLIN [Concomitant]
  3. IMODIUM [Concomitant]
  4. ASPIRIN [Concomitant]
  5. TRICOR [Concomitant]
  6. NORVASC [Concomitant]
  7. GLUCOTROL [Concomitant]
  8. HALOPERIDOL [Concomitant]
  9. METFORMIN HCL [Concomitant]
  10. PROTONIX [Concomitant]
  11. SEROQUEL [Concomitant]
  12. COGENTIN [Concomitant]
  13. DEPAKOTE [Concomitant]
  14. DIOVAN [Concomitant]
  15. PROZAC [Concomitant]

REACTIONS (1)
  - DEATH [None]
